FAERS Safety Report 16674473 (Version 2)
Quarter: 2019Q3

REPORT INFORMATION
  Report Type: Spontaneous
  Country: US (occurrence: US)
  Receive Date: 20190806
  Receipt Date: 20190812
  Transmission Date: 20191004
  Serious: Yes (Other)
  Sender: FDA-Public Use
  Company Number: US-PFIZER INC-2019329655

PATIENT
  Age: 24 Year
  Sex: Female

DRUGS (1)
  1. EPINEPHRINE. [Suspect]
     Active Substance: EPINEPHRINE
     Indication: LIPOSUCTION
     Dosage: 1 MG, UNK
     Route: 042

REACTIONS (2)
  - Stress cardiomyopathy [Not Recovered/Not Resolved]
  - Accidental exposure to product [Not Recovered/Not Resolved]
